FAERS Safety Report 9515702 (Version 1)
Quarter: 2013Q1

REPORT INFORMATION
  Report Type: Spontaneous
  Country: US (occurrence: None)
  Receive Date: 20130305
  Receipt Date: 20130305
  Transmission Date: 20140127
  Serious: Yes (Other)
  Sender: FDA-Public Use
  Company Number: 163-21880-12050767

PATIENT
  Age: 64 Year
  Sex: Male
  Weight: 66.45 kg

DRUGS (12)
  1. REVLIMID (LENALIDOMIDE) (5  MILLIGRAM, CAPSULES) [Suspect]
     Indication: AMYLOIDOSIS
     Route: 048
     Dates: start: 20120411, end: 20120604
  2. ASA (ACETYLSALICYLIC ACID) [Concomitant]
  3. OMEPRAZOLE (OMEPRAZOLE) [Concomitant]
  4. PANTOPRAZOLE (PANTOPRAZOLE) [Concomitant]
  5. CLONAZEPAM (CLONAZEPAM) (CLONAZEPAM) [Concomitant]
  6. BUDESONIDE (BUDESONIDE) [Concomitant]
  7. METOPROLOL (METOPROLOL) [Concomitant]
  8. ROSUVASTATIN (ROSUVASTATIN) [Concomitant]
  9. ALBUTEROL W/IPRATROP (COMBIVENT) [Concomitant]
  10. GEMFIBROZIL (GEMFIBROZIL) [Concomitant]
  11. FUROSEMIDE (FUROSEMIDE) [Concomitant]
  12. LISINOPRIL (LISINOPRIL) [Concomitant]

REACTIONS (6)
  - Haematemesis [None]
  - Dysphonia [None]
  - Contusion [None]
  - Contusion [None]
  - Nausea [None]
  - Gastrointestinal disorder [None]
